FAERS Safety Report 6074842-3 (Version None)
Quarter: 2009Q1

REPORT INFORMATION
  Report Type: 
  Country: None (occurrence: None)
  Receive Date: 20090209
  Receipt Date: 20090130
  Transmission Date: 20090719
  Serious: Yes (Hospitalization)
  Sender: FDA-Public Use
  Company Number: KV200900160

PATIENT
  Age: 66 Year
  Sex: Male

DRUGS (3)
  1. METOPROLOL SUCCINATE [Suspect]
     Indication: ARRHYTHMIA
     Dosage: 25MG, QD, ORAL
     Route: 048
     Dates: start: 20090122, end: 20090125
  2. LIPITOR [Concomitant]
  3. NEXIUM [Concomitant]

REACTIONS (2)
  - ATRIAL FIBRILLATION [None]
  - DRUG INEFFECTIVE [None]
